FAERS Safety Report 16301290 (Version 6)
Quarter: 2020Q1

REPORT INFORMATION
  Report Type: Spontaneous
  Country: US (occurrence: US)
  Receive Date: 20190510
  Receipt Date: 20200207
  Transmission Date: 20200409
  Serious: Yes (Hospitalization)
  Sender: FDA-Public Use
  Company Number: US-ACTELION-A-NJ2019-189258

PATIENT
  Age: 80 Year
  Sex: Female

DRUGS (14)
  1. ADEMPAS [Concomitant]
     Active Substance: RIOCIGUAT
  2. OMNARIS [Concomitant]
     Active Substance: CICLESONIDE
  3. SILDENAFIL. [Concomitant]
     Active Substance: SILDENAFIL
  4. MULTAQ [Concomitant]
     Active Substance: DRONEDARONE
     Dosage: 400 MG
  5. TRIAMTERENE AND HYDROCHLOROTHIAZIDE [Concomitant]
     Active Substance: HYDROCHLOROTHIAZIDE\TRIAMTERENE
  6. HYDROCODONE/ACETAMINOPHEN [Concomitant]
     Active Substance: ACETAMINOPHEN\HYDROCODONE
  7. LEVOCETIRIZINE DIHYDROCHLORIDE. [Concomitant]
     Active Substance: LEVOCETIRIZINE DIHYDROCHLORIDE
  8. OPSUMIT [Suspect]
     Active Substance: MACITENTAN
     Indication: PULMONARY ARTERIAL HYPERTENSION
     Dosage: 10 MG, QD
     Route: 048
     Dates: start: 20190312
  9. ELIQUIS [Concomitant]
     Active Substance: APIXABAN
     Dosage: 5 MG
  10. TOVIAZ [Concomitant]
     Active Substance: FESOTERODINE FUMARATE
  11. HYDRALAZINE HCL [Concomitant]
     Active Substance: HYDRALAZINE HYDROCHLORIDE
  12. NEXIUM [Concomitant]
     Active Substance: ESOMEPRAZOLE MAGNESIUM
  13. LASIX [Concomitant]
     Active Substance: FUROSEMIDE
  14. DETROL [Concomitant]
     Active Substance: TOLTERODINE TARTRATE

REACTIONS (16)
  - Anaemia [Unknown]
  - Unevaluable event [Unknown]
  - Arrhythmia [Unknown]
  - Weight increased [Unknown]
  - Thyroid disorder [Unknown]
  - Fluid retention [Unknown]
  - Pulmonary arterial hypertension [Unknown]
  - Headache [Recovered/Resolved]
  - Haemoglobin decreased [Unknown]
  - Asthenia [Unknown]
  - Gait disturbance [Unknown]
  - Joint swelling [Unknown]
  - Condition aggravated [Unknown]
  - Chills [Unknown]
  - Muscular weakness [Unknown]
  - Product dose omission [Recovered/Resolved]

NARRATIVE: CASE EVENT DATE: 20190620
